FAERS Safety Report 7907051-0 (Version None)
Quarter: 2011Q4

REPORT INFORMATION
  Report Type: 
  Country: None (occurrence: None)
  Receive Date: 20111110
  Receipt Date: 20111103
  Transmission Date: 20120403
  Serious: Yes (Hospitalization, Other)
  Sender: FDA-Public Use
  Company Number: US-B.I. PHARMACEUTICALS,INC./RIDGEFIELD-2011-BP-25714BP

PATIENT
  Age: 87 Year
  Sex: Female
  Weight: 46.6 kg

DRUGS (10)
  1. SYNTHROID [Concomitant]
  2. PRADAXA [Suspect]
     Indication: ATRIAL FIBRILLATION
     Dosage: 300 MG
     Route: 048
     Dates: start: 20110301
  3. APRESOLINE [Concomitant]
  4. TOPROL-XL [Concomitant]
  5. BENICAR HCT [Concomitant]
  6. M.V.I. [Concomitant]
  7. BONIVA [Concomitant]
  8. TEMAZEPAM [Concomitant]
  9. DOCUSATE [Concomitant]
  10. ANASTROZOLE [Concomitant]

REACTIONS (4)
  - CONFUSIONAL STATE [None]
  - LETHARGY [None]
  - FALL [None]
  - ENDOCARDITIS [None]
